FAERS Safety Report 11194103 (Version 2)
Quarter: 2015Q2

REPORT INFORMATION
  Report Type: Spontaneous
  Country: DK (occurrence: DK)
  Receive Date: 20150616
  Receipt Date: 20150617
  Transmission Date: 20150821
  Serious: Yes (Other)
  Sender: FDA-Public Use
  Company Number: AU-MYLANLABS-2015M1019575

PATIENT

DRUGS (10)
  1. CLOZAPINE. [Suspect]
     Active Substance: CLOZAPINE
     Indication: SCHIZOPHRENIA, PARANOID TYPE
     Dosage: 650MG DAILY (150+0+0+500MG)
     Route: 065
  2. PREGABALIN. [Interacting]
     Active Substance: PREGABALIN
     Dosage: 225MG, AND THEN INCREASED TO 300MG
     Route: 065
  3. PREGABALIN. [Interacting]
     Active Substance: PREGABALIN
     Indication: OFF LABEL USE
     Dosage: 150MG, AND THEN INCREASED TO 225MG
     Route: 065
  4. VALPROATE [Concomitant]
     Active Substance: VALPROATE SODIUM
     Indication: SEIZURE
     Dosage: 300+0+0+300MG
     Route: 065
  5. SERTINDOLE [Concomitant]
     Active Substance: SERTINDOLE
     Indication: PRODUCT USED FOR UNKNOWN INDICATION
     Dosage: 16+0+0+0MG
     Route: 065
  6. PREGABALIN. [Interacting]
     Active Substance: PREGABALIN
     Indication: ANXIETY
     Dosage: 75MG, AND THEN INCREASED TO 150MG
     Route: 065
  7. CLONAZEPAM. [Concomitant]
     Active Substance: CLONAZEPAM
     Indication: PRODUCT USED FOR UNKNOWN INDICATION
     Dosage: 0.5+0+0+0.5MG
     Route: 065
  8. SERTINDOLE [Concomitant]
     Active Substance: SERTINDOLE
     Dosage: 16+0+0+0MG
     Route: 065
  9. PREGABALIN. [Interacting]
     Active Substance: PREGABALIN
     Dosage: 300MG
     Route: 065
  10. LITHIUM. [Concomitant]
     Active Substance: LITHIUM
     Indication: PRODUCT USED FOR UNKNOWN INDICATION
     Dosage: 0+0+0+18MMOL
     Route: 065

REACTIONS (6)
  - Fall [Unknown]
  - Foot fracture [Unknown]
  - Skin wound [Unknown]
  - Drug interaction [Unknown]
  - Syncope [Unknown]
  - Sedation [Unknown]
